FAERS Safety Report 4359470-X (Version None)
Quarter: 2004Q2

REPORT INFORMATION
  Report Type: 
  Country: None (occurrence: None)
  Receive Date: 20040514
  Receipt Date: 20040514
  Transmission Date: 20050107
  Serious: Yes (Hospitalization)
  Sender: FDA-Public Use
  Company Number: None

PATIENT
  Age: 68 Year
  Sex: Male

DRUGS (6)
  1. WARFARIN SODIUM [Suspect]
     Indication: THROMBOSIS PROPHYLAXIS
     Dosage: 5 MG QD
     Dates: start: 20031102
  2. FUROSEMIDE [Concomitant]
  3. ASPIRIN [Concomitant]
  4. MORPHINE [Concomitant]
  5. COMBIVENT [Concomitant]
  6. BENADRYL [Concomitant]

REACTIONS (2)
  - DIZZINESS [None]
  - MELAENA [None]
